FAERS Safety Report 9419736 (Version 3)
Quarter: 2014Q2

REPORT INFORMATION
  Report Type: Report from Study
  Country: JP (occurrence: JP)
  Receive Date: 20130725
  Receipt Date: 20140624
  Transmission Date: 20141212
  Serious: Yes (Hospitalization)
  Sender: FDA-Public Use
  Company Number: JP-PFIZER INC-2013212265

PATIENT
  Age: 62 Year
  Sex: Female
  Weight: 47 kg

DRUGS (12)
  1. XALKORI [Suspect]
     Indication: NON-SMALL CELL LUNG CANCER
     Dosage: 200 MG, 2X/DAY
     Route: 048
     Dates: start: 20120907, end: 20130626
  2. ZOMETA [Concomitant]
     Dosage: 4 MG, 1X/DAY
     Dates: start: 20130304, end: 20130304
  3. ZOMETA [Concomitant]
     Dosage: 4 MG, 1X/DAY
     Dates: start: 20130501, end: 20130501
  4. ZOMETA [Concomitant]
     Dosage: 4 MG, 1X/DAY
     Dates: start: 20130527, end: 20130527
  5. PRIMPERAN [Concomitant]
     Indication: DIZZINESS
     Dosage: 5 MG, 3X/DAY
     Route: 048
     Dates: start: 20130401, end: 20130707
  6. PRIMPERAN [Concomitant]
     Indication: BRONCHITIS
  7. AUGMENTIN [Concomitant]
     Indication: DIZZINESS
     Dosage: 375 MG, 4X/DAY
     Route: 048
     Dates: start: 20130325, end: 20130331
  8. AUGMENTIN [Concomitant]
     Indication: BRONCHITIS
  9. LUPRAC [Concomitant]
     Indication: DIZZINESS
     Dosage: 8 MG, 1X/DAY
     Route: 048
     Dates: start: 20130401, end: 20130414
  10. LUPRAC [Concomitant]
     Indication: BRONCHITIS
  11. CODEINE PHOSPHATE [Concomitant]
     Indication: DIZZINESS
     Dosage: 3 G, 3X/DAY
     Dates: start: 20130401, end: 20130430
  12. CODEINE PHOSPHATE [Concomitant]
     Indication: BRONCHITIS

REACTIONS (1)
  - Renal abscess [Recovered/Resolved]
